FAERS Safety Report 26129080 (Version 1)
Quarter: 2025Q4

REPORT INFORMATION
  Report Type: Other
  Country: US (occurrence: US)
  Receive Date: 20251208
  Receipt Date: 20251208
  Transmission Date: 20260117
  Serious: Yes (Hospitalization, Other)
  Sender: ALVOGEN
  Company Number: US-ALVOGEN-2025099125

PATIENT
  Age: 69 Year
  Sex: Female

DRUGS (2)
  1. FLECAINIDE [Suspect]
     Active Substance: FLECAINIDE
     Indication: Product used for unknown indication
     Dosage: 50 MG TWICE DAILY INITIALLY FOR THE ?RST WEEK
  2. FLECAINIDE [Suspect]
     Active Substance: FLECAINIDE
     Indication: Product used for unknown indication
     Dosage: INCREASED TO 100 MG TWICE DAILY

REACTIONS (6)
  - Toxicity to various agents [Unknown]
  - Peripheral swelling [Unknown]
  - Orthopnoea [Unknown]
  - Unresponsive to stimuli [Unknown]
  - Pulseless electrical activity [Recovered/Resolved]
  - Arrhythmia [Recovered/Resolved]
